FAERS Safety Report 20043542 (Version 1)
Quarter: 2021Q4

REPORT INFORMATION
  Report Type: Report from Study
  Country: US (occurrence: US)
  Receive Date: 20211108
  Receipt Date: 20211108
  Transmission Date: 20220303
  Serious: Yes (Other)
  Sender: FDA-Public Use
  Company Number: US-TG THERAPEUTICS INC.-UTX-TG501-202001751

PATIENT
  Age: 65 Year
  Sex: Male
  Weight: 80.272 kg

DRUGS (4)
  1. UBLITUXIMAB [Suspect]
     Active Substance: UBLITUXIMAB
     Indication: Follicular lymphoma
     Dosage: 900 MG, UNK
     Route: 042
     Dates: start: 20151214, end: 20201019
  2. UMBRALISIB [Suspect]
     Active Substance: UMBRALISIB
     Indication: Follicular lymphoma
     Dosage: 400 MILLIGRAM, QD
     Route: 048
     Dates: start: 20151214, end: 20201019
  3. SEROQUEL [Concomitant]
     Active Substance: QUETIAPINE FUMARATE
     Indication: Bipolar disorder
     Dosage: 100 MG, DAILY
     Route: 048
     Dates: start: 20200427, end: 20200726
  4. LEVAQUIN [Concomitant]
     Active Substance: LEVOFLOXACIN
     Indication: Urinary tract infection
     Dosage: 500 MG, DAILY
     Route: 048
     Dates: start: 20200612, end: 20200711

REACTIONS (1)
  - Cytomegalovirus viraemia [Recovered/Resolved]

NARRATIVE: CASE EVENT DATE: 20200731
